FAERS Safety Report 12211984 (Version 4)
Quarter: 2017Q3

REPORT INFORMATION
  Report Type: Other
  Country: JP (occurrence: JP)
  Receive Date: 20160325
  Receipt Date: 20170914
  Transmission Date: 20171127
  Serious: Yes (Life-Threatening, Hospitalization, Disabling, Other)
  Sender: FDA-Public Use
  Company Number: JP-BRISTOL-MYERS SQUIBB COMPANY-BMS-2015-091695

PATIENT
  Age: 68 Year
  Sex: Male
  Weight: 76.7 kg

DRUGS (1)
  1. ELIQUIS [Suspect]
     Active Substance: APIXABAN
     Indication: CEREBROVASCULAR ACCIDENT PROPHYLAXIS
     Dosage: 2.5 MG, BID
     Route: 048
     Dates: start: 20141226, end: 20150225

REACTIONS (4)
  - Subdural haematoma [Recovered/Resolved]
  - Off label use [Unknown]
  - Haematoma evacuation [Unknown]
  - Headache [Unknown]

NARRATIVE: CASE EVENT DATE: 201501
